FAERS Safety Report 20193064 (Version 2)
Quarter: 2023Q1

REPORT INFORMATION
  Report Type: Spontaneous
  Country: US (occurrence: US)
  Receive Date: 20211216
  Receipt Date: 20230207
  Transmission Date: 20230417
  Serious: Yes (Hospitalization)
  Sender: FDA-Public Use
  Company Number: US-ORG100016242-2021000853

PATIENT
  Age: 56 Year
  Sex: Female
  Weight: 54.5 kg

DRUGS (4)
  1. EXPAREL [Suspect]
     Active Substance: BUPIVACAINE
     Indication: Infiltration anaesthesia
     Dosage: MIXED WITH 40 CC 0.25% MARCAINE AND 60 CC NACL
     Route: 065
     Dates: start: 20211115, end: 20211115
  2. MARCAINE [Suspect]
     Active Substance: BUPIVACAINE HYDROCHLORIDE
     Indication: Infiltration anaesthesia
     Dosage: 40 CC WITH 20 CC EXPAREL AND 60 CC NACL
     Route: 065
     Dates: start: 20211115, end: 20211115
  3. SODIUM CHLORIDE [Concomitant]
     Active Substance: SODIUM CHLORIDE
     Indication: Infiltration anaesthesia
     Dosage: 60 CC WITH 20 CC OF EXPAREL AND 40 CC 0.25% MARCAINE
     Route: 065
     Dates: start: 20211115, end: 20211115
  4. WELLBUTRIN [Concomitant]
     Active Substance: BUPROPION HYDROCHLORIDE
     Indication: Product used for unknown indication
     Route: 048

REACTIONS (1)
  - Pyoderma gangrenosum [Recovered/Resolved]
